FAERS Safety Report 8465878-3 (Version None)
Quarter: 2012Q2

REPORT INFORMATION
  Report Type: 
  Country: None (occurrence: None)
  Receive Date: 20120626
  Receipt Date: 20120626
  Transmission Date: 20120825
  Serious: Yes (Hospitalization, Other)
  Sender: FDA-Public Use
  Company Number: DE-PFIZER INC-2009US-26026

PATIENT
  Age: 77 Year
  Sex: Female

DRUGS (15)
  1. AZITHROMYCIN [Suspect]
     Indication: BRONCHITIS
     Dosage: UNK
     Route: 048
     Dates: start: 20090501, end: 20090511
  2. METHOTREXATE [Concomitant]
  3. LEVOTHYROXINE SODIUM [Concomitant]
     Dosage: UNK
     Dates: start: 19960101
  4. ALENDRONATE SODIUM [Concomitant]
     Dosage: UNK
     Dates: start: 20060101
  5. DICLOFENAC RESINATE [Concomitant]
  6. CALCIUM D3 [Concomitant]
     Dosage: UNK
     Dates: start: 20060101
  7. AMBROXOL [Concomitant]
     Dosage: UNK
     Dates: start: 20090501, end: 20090511
  8. ENOXAPARIN SODIUM [Concomitant]
  9. POTASSIUM CHLORIDE [Concomitant]
     Dosage: UNK
     Dates: start: 20070101
  10. ACETYLSALICYLIC ACID [Concomitant]
     Dosage: UNK
     Dates: start: 20080501
  11. VERAPAMIL HCL [Suspect]
     Indication: ATRIAL FIBRILLATION
     Dosage: 240 MG, QD
     Route: 048
     Dates: start: 20060101, end: 20090514
  12. PREDNISOLONE [Suspect]
     Indication: RHEUMATOID ARTHRITIS
     Dosage: 15 MG, QD
     Route: 048
     Dates: start: 20060901
  13. DIGITOXIN TAB [Suspect]
     Indication: ATRIAL FIBRILLATION
     Dosage: 0.07 MG, UNK
     Route: 048
     Dates: start: 20070901, end: 20090514
  14. HYDROCHLOROTHIAZIDE [Concomitant]
     Dosage: UNK
     Dates: start: 20070101
  15. BUDESONIDE/FORMOTEROL FUMARATE [Concomitant]
     Dosage: UNK
     Dates: start: 20090501

REACTIONS (3)
  - TOXICITY TO VARIOUS AGENTS [None]
  - DRUG INTERACTION [None]
  - PULMONARY EMBOLISM [None]
